FAERS Safety Report 4556790-0 (Version None)
Quarter: 2005Q1

REPORT INFORMATION
  Report Type: 
  Country: None (occurrence: None)
  Receive Date: 20050120
  Receipt Date: 20050110
  Transmission Date: 20050727
  Serious: Yes (Death, Hospitalization)
  Sender: FDA-Public Use
  Company Number: US-JNJFOC-20041003888

PATIENT
  Sex: Male
  Weight: 89.81 kg

DRUGS (16)
  1. NATRECOR [Suspect]
     Indication: PULMONARY HYPERTENSION
     Dosage: INFUSION
     Route: 042
  2. NATRECOR [Suspect]
     Dosage: BOLUS
     Route: 042
  3. FUROSEMIDE [Concomitant]
     Dosage: 3 TABLETS (120 MG) IN A.M. AND 2 TABLET (80 MG) IN P.M.
  4. POTASSIUM CHLORIDE [Concomitant]
  5. LOVENOX [Concomitant]
  6. ATENOLOL [Concomitant]
  7. OMEPRAZOLE [Concomitant]
  8. FOLIC ACID [Concomitant]
  9. COMBIVENT AERO [Concomitant]
  10. COMBIVENT AERO [Concomitant]
     Dosage: 2 PUFFS FOUR TIMES DAILY
  11. CYANOCOBALAMIN [Concomitant]
     Dosage: NOTE-DRUG NAME MISSPELLED AS 'CYANOBALAMIN'.
  12. CALCIUM GLUCONATE [Concomitant]
  13. FLUTICASONE PROPIONATE [Concomitant]
     Dosage: 2 PUFFS TWICE DAILY
  14. WARFARIN [Concomitant]
  15. DILTIAZEM [Concomitant]
  16. TOPROL-XL [Concomitant]

REACTIONS (8)
  - BENIGN PROSTATIC HYPERPLASIA [None]
  - BRADYCARDIA [None]
  - CARDIAC ARREST [None]
  - HYPOTENSION [None]
  - MYOCARDIAL INFARCTION [None]
  - NEUROGENIC BLADDER [None]
  - URETHRAL HAEMORRHAGE [None]
  - URINARY RETENTION [None]
